FAERS Safety Report 9609738 (Version 1)
Quarter: 2013Q4

REPORT INFORMATION
  Report Type: Spontaneous
  Country: US (occurrence: US)
  Receive Date: 20131009
  Receipt Date: 20131009
  Transmission Date: 20140711
  Serious: No
  Sender: FDA-Public Use
  Company Number: US-PURDUE-USA-2012-0095557

PATIENT
  Age: 34 Year
  Sex: Female

DRUGS (6)
  1. BUTRANS [Suspect]
     Indication: SCIATICA
     Dosage: 20 MCG, 1/WEEK
     Route: 062
     Dates: start: 20121027
  2. BUTRANS [Suspect]
     Indication: MUSCULOSKELETAL DISCOMFORT
  3. SOMA [Concomitant]
     Indication: MUSCLE SPASMS
     Dosage: 350 MG, TID
     Route: 048
  4. DRALICE [Concomitant]
     Indication: NEURALGIA
     Dosage: 1800 MG, DAILY
     Route: 048
  5. STEROID ANTIBACTERIALS [Suspect]
     Indication: SCIATICA
     Dosage: UNK
     Route: 065
  6. STEROID ANTIBACTERIALS [Suspect]
     Indication: MUSCULOSKELETAL DISCOMFORT

REACTIONS (5)
  - Product adhesion issue [Unknown]
  - Inadequate analgesia [Not Recovered/Not Resolved]
  - Application site erythema [Not Recovered/Not Resolved]
  - Application site pruritus [Not Recovered/Not Resolved]
  - Application site urticaria [Not Recovered/Not Resolved]
